FAERS Safety Report 26032017 (Version 2)
Quarter: 2025Q4

REPORT INFORMATION
  Report Type: Report from Study
  Country: EU (occurrence: EU)
  Receive Date: 20251112
  Receipt Date: 20251215
  Transmission Date: 20260117
  Serious: Yes (Other)
  Sender: ROCHE
  Company Number: EU-ROCHE-10000433532

PATIENT
  Age: 68 Year
  Sex: Female

DRUGS (4)
  1. PIRFENIDONE [Suspect]
     Active Substance: PIRFENIDONE
     Indication: Idiopathic pulmonary fibrosis
  2. PIRFENIDONE [Suspect]
     Active Substance: PIRFENIDONE
     Indication: Pulmonary fibrosis
  3. NINTEDANIB [Suspect]
     Active Substance: NINTEDANIB
     Indication: Idiopathic pulmonary fibrosis
  4. NINTEDANIB [Suspect]
     Active Substance: NINTEDANIB
     Indication: Pulmonary fibrosis

REACTIONS (1)
  - Hepatic enzyme increased [Recovered/Resolved]
